FAERS Safety Report 7971418-5 (Version None)
Quarter: 2011Q4

REPORT INFORMATION
  Report Type: 
  Country: None (occurrence: None)
  Receive Date: 20111212
  Receipt Date: 20111206
  Transmission Date: 20120403
  Serious: Yes (Hospitalization)
  Sender: FDA-Public Use
  Company Number: US-GILEAD-2011-0046759

PATIENT
  Age: 59 Year
  Sex: Female

DRUGS (2)
  1. LETAIRIS [Suspect]
     Indication: PRODUCT USED FOR UNKNOWN INDICATION
     Dosage: 10 MG, UNK
     Route: 048
     Dates: start: 20090906
  2. REVATIO [Concomitant]

REACTIONS (5)
  - PERTUSSIS [None]
  - HEART RATE INCREASED [None]
  - HEART RATE DECREASED [None]
  - FATIGUE [None]
  - DYSPNOEA [None]
